FAERS Safety Report 6090640-9 (Version None)
Quarter: 2009Q1

REPORT INFORMATION
  Report Type: 
  Country: None (occurrence: None)
  Receive Date: 20090224
  Receipt Date: 20090120
  Transmission Date: 20090719
  Serious: No
  Sender: FDA-Public Use
  Company Number: US-ABBOTT-09P-163-0499141-00

PATIENT
  Sex: Male

DRUGS (6)
  1. SIMCOR [Suspect]
     Indication: HIGH DENSITY LIPOPROTEIN NORMAL
     Dates: start: 20090106
  2. SIMCOR [Suspect]
     Indication: LOW DENSITY LIPOPROTEIN NORMAL
  3. SIMCOR [Suspect]
     Indication: BLOOD CHOLESTEROL INCREASED
  4. SIMCOR [Suspect]
     Indication: BLOOD TRIGLYCERIDES INCREASED
  5. SIMCOR [Suspect]
     Indication: LABORATORY TEST ABNORMAL
  6. ASPIRIN [Concomitant]
     Indication: DRUG USE FOR UNKNOWN INDICATION

REACTIONS (3)
  - DIARRHOEA [None]
  - FLATULENCE [None]
  - NAUSEA [None]
